FAERS Safety Report 6000629-3 (Version None)
Quarter: 2008Q4

REPORT INFORMATION
  Report Type: 
  Country: None (occurrence: None)
  Receive Date: 20081211
  Receipt Date: 20081128
  Transmission Date: 20090506
  Serious: Yes (Death, Life-Threatening)
  Sender: FDA-Public Use
  Company Number: S08-ITA-00253-01

PATIENT
  Age: 83 Year
  Sex: Male

DRUGS (4)
  1. EBIXA (MEMANTINE HYDROCHLORIDE) (TABLETS) [Suspect]
     Indication: DEMENTIA ALZHEIMER'S TYPE
     Dosage: 20 MG (20 MG, 1 IN 1 D), ORAL
     Route: 048
     Dates: start: 20070504, end: 20071008
  2. METFORMINE (TABLETS) [Concomitant]
  3. RAMIPRIL (RAMIPRIL) (TABLETS) (RAMIPRIL) [Concomitant]
  4. TRAZODONE (TRAZODONE) (TABLETS) (TRAZODONE) [Concomitant]

REACTIONS (6)
  - BONE MARROW TOXICITY [None]
  - ERYTHROPENIA [None]
  - INFLUENZA [None]
  - LEUKOPENIA [None]
  - PULMONARY EMBOLISM [None]
  - THROMBOCYTOPENIA [None]
